FAERS Safety Report 5119382-0 (Version None)
Quarter: 2006Q3

REPORT INFORMATION
  Report Type: 
  Country: None (occurrence: None)
  Receive Date: 20060928
  Receipt Date: 20060912
  Transmission Date: 20061208
  Serious: Yes (Hospitalization, Other)
  Sender: FDA-Public Use
  Company Number: 2006010946

PATIENT
  Age: 54 Year
  Sex: Female
  Weight: 74.8435 kg

DRUGS (2)
  1. BEXTRA [Suspect]
     Indication: CARPAL TUNNEL SYNDROME
     Dosage: (3-4 TIMES DAILY), ORAL
     Route: 048
     Dates: start: 20000101
  2. BEXTRA [Suspect]
     Indication: PAIN
     Dosage: (3-4 TIMES DAILY), ORAL
     Route: 048
     Dates: start: 20000101

REACTIONS (1)
  - CEREBROVASCULAR ACCIDENT [None]
